FAERS Safety Report 9139035 (Version 1)
Quarter: 2013Q1

REPORT INFORMATION
  Report Type: Spontaneous
  Country: ES (occurrence: ES)
  Receive Date: 20130305
  Receipt Date: 20130305
  Transmission Date: 20140127
  Serious: Yes (Hospitalization)
  Sender: FDA-Public Use
  Company Number: ES-BRISTOL-MYERS SQUIBB COMPANY-17410275

PATIENT
  Age: 64 Year
  Sex: Male

DRUGS (2)
  1. TRIGON [Suspect]
     Indication: ARTHRALGIA
     Route: 014
     Dates: start: 20130114, end: 20130114
  2. MEPIVACAINE [Suspect]
     Indication: ARTHRALGIA
     Route: 014
     Dates: start: 20130114, end: 20130114

REACTIONS (1)
  - Acute myocardial infarction [Not Recovered/Not Resolved]
